FAERS Safety Report 8470372-X (Version None)
Quarter: 2012Q2

REPORT INFORMATION
  Report Type: 
  Country: None (occurrence: None)
  Receive Date: 20120323
  Receipt Date: 20111010
  Transmission Date: 20120825
  Serious: Yes (Hospitalization)
  Sender: FDA-Public Use
  Company Number: 163-21880-11101254

PATIENT
  Age: 76 Year
  Sex: Male

DRUGS (16)
  1. NEURONTIN [Concomitant]
  2. PROTONIX [Concomitant]
  3. PACKED CELLS (BLOOD CELLS, PACKED HUMAN) [Concomitant]
  4. PRILOSEC [Concomitant]
  5. REVLIMID [Suspect]
     Indication: MULTIPLE MYELOMA
     Dosage: 25 MG, 1 IN1 D, PO
     Route: 048
     Dates: start: 20110301, end: 20110812
  6. PRINIVIL [Concomitant]
  7. SINEMET [Concomitant]
  8. ZOCOR [Concomitant]
  9. GLUCOTROL XL [Concomitant]
  10. ASPIRIN [Concomitant]
  11. DEXAMETHASONE [Concomitant]
  12. VANCOMYCIN [Concomitant]
  13. SENNA S (COLOXYL WITH SENNA) [Concomitant]
  14. LANOXIN [Concomitant]
  15. LOPRESSOR (METORPOLOL TARTRATE) [Concomitant]
  16. CEFEPIME [Concomitant]

REACTIONS (1)
  - PANCYTOPENIA [None]
